FAERS Safety Report 4723494-0 (Version None)
Quarter: 2005Q3

REPORT INFORMATION
  Report Type: 
  Country: None (occurrence: None)
  Receive Date: 20050725
  Receipt Date: 20030122
  Transmission Date: 20060218
  Serious: No
  Sender: FDA-Public Use
  Company Number: US-GLAXOSMITHKLINE-A0393586A

PATIENT
  Age: 64 Year
  Sex: Female

DRUGS (3)
  1. DYAZIDE [Suspect]
     Dosage: 1CAP TWICE PER DAY
     Route: 048
     Dates: start: 20030114, end: 20030116
  2. LASIX [Suspect]
  3. TOPROL-XL [Concomitant]

REACTIONS (14)
  - ABDOMINAL PAIN [None]
  - BACK PAIN [None]
  - BLOOD MAGNESIUM DECREASED [None]
  - BLOOD POTASSIUM DECREASED [None]
  - BURNING SENSATION [None]
  - DEHYDRATION [None]
  - DYSPEPSIA [None]
  - DYSURIA [None]
  - EYE DISCHARGE [None]
  - EYE PAIN [None]
  - PAIN IN EXTREMITY [None]
  - POLYURIA [None]
  - RECTAL HAEMORRHAGE [None]
  - VENTRICULAR EXTRASYSTOLES [None]
